FAERS Safety Report 4795348-5 (Version None)
Quarter: 2005Q4

REPORT INFORMATION
  Report Type: 
  Country: None (occurrence: None)
  Receive Date: 20051012
  Receipt Date: 20051003
  Transmission Date: 20060501
  Serious: Yes (Death, Other)
  Sender: FDA-Public Use
  Company Number: US-JNJFOC-20051000805

PATIENT
  Sex: Male

DRUGS (3)
  1. DURAGESIC-100 [Suspect]
     Indication: INTENTIONAL DRUG MISUSE
     Route: 065
  2. DIAZEPAM [Suspect]
     Indication: INTENTIONAL DRUG MISUSE
     Route: 065
  3. ETHANOL [Suspect]
     Indication: INTENTIONAL DRUG MISUSE
     Route: 065

REACTIONS (6)
  - ANOXIC ENCEPHALOPATHY [None]
  - BRAIN OEDEMA [None]
  - DRUG TOXICITY [None]
  - INJURY [None]
  - MULTIPLE DRUG OVERDOSE [None]
  - OVERDOSE [None]
